FAERS Safety Report 23576300 (Version 3)
Quarter: 2024Q1

REPORT INFORMATION
  Report Type: Spontaneous
  Country: JP (occurrence: JP)
  Receive Date: 20240228
  Receipt Date: 20240311
  Transmission Date: 20240410
  Serious: Yes (Hospitalization, Other)
  Sender: FDA-Public Use
  Company Number: JP-ARGENX-2024-ARGX-JP001301AA

PATIENT

DRUGS (9)
  1. VYVGART [Suspect]
     Active Substance: EFGARTIGIMOD ALFA-FCAB
     Indication: Myasthenia gravis
     Dosage: 700 MG
     Route: 041
     Dates: start: 20231128
  2. VYVGART [Suspect]
     Active Substance: EFGARTIGIMOD ALFA-FCAB
     Dosage: 700 MG
     Route: 041
     Dates: start: 20240215, end: 20240215
  3. PREDONINE [Concomitant]
     Active Substance: PREDNISOLONE
     Dosage: 5 MG
     Route: 048
  4. MESTINON [Concomitant]
     Active Substance: PYRIDOSTIGMINE BROMIDE
     Dosage: 120 MG
     Route: 065
  5. DAYVIGO [Concomitant]
     Active Substance: LEMBOREXANT
     Dosage: 5 MG
     Route: 065
  6. TORSEMIDE [Concomitant]
     Active Substance: TORSEMIDE
     Dosage: 2 MG
     Route: 065
  7. TELMISARTAN [Concomitant]
     Active Substance: TELMISARTAN
     Dosage: 80 MG
     Route: 065
  8. BENZBROMARONE [Concomitant]
     Active Substance: BENZBROMARONE
     Dosage: 25 MG
     Route: 065
  9. DILTIAZEM HYDROCHLORIDE [Concomitant]
     Active Substance: DILTIAZEM HYDROCHLORIDE
     Dosage: 200 MG
     Route: 065

REACTIONS (3)
  - Pyelonephritis [Recovered/Resolved]
  - Myasthenia gravis crisis [Unknown]
  - Bacterial infection [Recovered/Resolved]

NARRATIVE: CASE EVENT DATE: 20240220
